FAERS Safety Report 5420454-1 (Version None)
Quarter: 2007Q3

REPORT INFORMATION
  Report Type: 
  Country: None (occurrence: None)
  Receive Date: 20070821
  Receipt Date: 20070809
  Transmission Date: 20080115
  Serious: Yes (Other)
  Sender: FDA-Public Use
  Company Number: PHEH2007US06221

PATIENT
  Sex: Female

DRUGS (1)
  1. GLEEVEC [Suspect]
     Indication: CHRONIC MYELOID LEUKAEMIA
     Dosage: 800 MG, QD
     Route: 048

REACTIONS (5)
  - ABASIA [None]
  - DEEP VEIN THROMBOSIS [None]
  - HEPATIC CIRRHOSIS [None]
  - LIVER FUNCTION TEST ABNORMAL [None]
  - OEDEMA PERIPHERAL [None]
